FAERS Safety Report 15941466 (Version 2)
Quarter: 2020Q1

REPORT INFORMATION
  Report Type: Spontaneous
  Country: US (occurrence: US)
  Receive Date: 20190208
  Receipt Date: 20200303
  Transmission Date: 20200409
  Serious: Yes (Other)
  Sender: FDA-Public Use
  Company Number: US-ASTRAZENECA-2019SE11399

PATIENT
  Age: 28197 Day
  Sex: Female

DRUGS (40)
  1. NEXIUM 24HR [Suspect]
     Active Substance: ESOMEPRAZOLE MAGNESIUM
     Indication: GASTROOESOPHAGEAL REFLUX DISEASE
     Route: 048
     Dates: start: 2014, end: 2017
  2. AMLODIPINE [Concomitant]
     Active Substance: AMLODIPINE BESYLATE
  3. ACETAMINOPHEN. [Concomitant]
     Active Substance: ACETAMINOPHEN
     Indication: ARTHRALGIA
     Dosage: 1980S
  4. ACETAMINOPHEN. [Concomitant]
     Active Substance: ACETAMINOPHEN
     Indication: MYALGIA
     Dosage: 1980S
  5. AMITIZA [Concomitant]
     Active Substance: LUBIPROSTONE
     Dates: start: 20110427
  6. PROTONIX [Suspect]
     Active Substance: PANTOPRAZOLE SODIUM
     Route: 065
  7. TUMS [Concomitant]
     Active Substance: CALCIUM CARBONATE
     Dates: start: 1980
  8. AMOXICILLIN. [Concomitant]
     Active Substance: AMOXICILLIN
     Indication: INFECTION
     Dates: start: 201311
  9. HYDRALAZINE [Concomitant]
     Active Substance: HYDRALAZINE HYDROCHLORIDE
     Indication: BLOOD PRESSURE MEASUREMENT
     Dates: start: 201609
  10. NEXIUM [Suspect]
     Active Substance: ESOMEPRAZOLE MAGNESIUM
     Indication: GASTROOESOPHAGEAL REFLUX DISEASE
     Route: 048
     Dates: start: 20110207
  11. PRILOSEC [Suspect]
     Active Substance: OMEPRAZOLE MAGNESIUM
     Indication: GASTROOESOPHAGEAL REFLUX DISEASE
     Route: 048
     Dates: start: 1988, end: 1990
  12. PREVACID 24 HR [Suspect]
     Active Substance: LANSOPRAZOLE
     Route: 065
  13. FUROSEMIDE. [Concomitant]
     Active Substance: FUROSEMIDE
     Indication: SWELLING
     Dates: start: 201404, end: 201602
  14. CEFUROXIME. [Concomitant]
     Active Substance: CEFUROXIME
     Indication: INFECTION
     Dates: start: 201506
  15. TORSEMIDE. [Concomitant]
     Active Substance: TORSEMIDE
     Indication: DIURETIC THERAPY
     Dates: start: 201506
  16. PENICILLIN [Concomitant]
     Active Substance: PENICILLIN
     Indication: INFECTION
     Dates: start: 201506
  17. BUMETANIDE. [Concomitant]
     Active Substance: BUMETANIDE
     Indication: HYPERTENSION
     Dates: start: 201604, end: 201810
  18. ATORVASTATIN [Concomitant]
     Active Substance: ATORVASTATIN
     Indication: BLOOD CHOLESTEROL INCREASED
     Dates: start: 201609
  19. CYMBALTA [Concomitant]
     Active Substance: DULOXETINE HYDROCHLORIDE
     Dates: start: 20111230
  20. PROPRANOLOL [Concomitant]
     Active Substance: PROPRANOLOL HYDROCHLORIDE
  21. TRAMADOL. [Concomitant]
     Active Substance: TRAMADOL
     Indication: PAIN
     Dates: start: 201012
  22. CIPROFLOXACIN. [Concomitant]
     Active Substance: CIPROFLOXACIN
     Indication: INFECTION
     Dates: start: 201012
  23. CIPROFLOXACIN. [Concomitant]
     Active Substance: CIPROFLOXACIN
     Indication: INFECTION
     Dates: start: 201702
  24. AMPICILLIN [Concomitant]
     Active Substance: AMPICILLIN
     Indication: INFECTION
     Dates: start: 201703
  25. LEVOFLOXACIN. [Concomitant]
     Active Substance: LEVOFLOXACIN
     Indication: INFECTION
     Dates: start: 201810
  26. PRILOSEC OTC [Suspect]
     Active Substance: OMEPRAZOLE MAGNESIUM
     Route: 048
  27. DEXILANT [Suspect]
     Active Substance: DEXLANSOPRAZOLE
     Route: 065
  28. PREVACID [Suspect]
     Active Substance: LANSOPRAZOLE
     Route: 065
  29. TRIAMTERENE-HCTZ [Concomitant]
     Active Substance: HYDROCHLOROTHIAZIDE\TRIAMTERENE
     Indication: HYPERTENSION
     Dates: start: 200807, end: 201108
  30. TRAMADOL. [Concomitant]
     Active Substance: TRAMADOL
     Indication: PAIN
     Dates: start: 201702
  31. NEXIUM [Suspect]
     Active Substance: ESOMEPRAZOLE MAGNESIUM
     Indication: GASTROOESOPHAGEAL REFLUX DISEASE
     Route: 048
     Dates: start: 1990, end: 2014
  32. ATACAND [Concomitant]
     Active Substance: CANDESARTAN CILEXETIL
  33. ROLAIDS [Concomitant]
     Active Substance: CALCIUM CARBONATE\MAGNESIUM HYDROXIDE
     Dates: start: 1980
  34. CEPHALEXIN. [Concomitant]
     Active Substance: CEPHALEXIN
     Indication: INFECTION
     Dates: start: 201306
  35. VALSARTAN AND HYDROCHLOROTHIAZIDE [Concomitant]
     Active Substance: HYDROCHLOROTHIAZIDE\VALSARTAN
     Indication: HYPERTENSION
     Dates: start: 201509, end: 201603
  36. AMOXICILLIN CLAVULANATE [Concomitant]
     Active Substance: AMOXICILLIN\CLAVULANIC ACID
     Indication: INFECTION
     Dates: start: 201802
  37. NEXIUM [Suspect]
     Active Substance: ESOMEPRAZOLE MAGNESIUM
     Indication: GASTROOESOPHAGEAL REFLUX DISEASE
     Route: 048
     Dates: start: 20110412
  38. SYNTHROID [Concomitant]
     Active Substance: LEVOTHYROXINE SODIUM
  39. AMOXICILLIN. [Concomitant]
     Active Substance: AMOXICILLIN
     Indication: INFECTION
     Dates: start: 200908
  40. VIVELLE-DOT [Concomitant]
     Active Substance: ESTRADIOL
     Dates: start: 20110817

REACTIONS (5)
  - Renal failure [Unknown]
  - Nephrogenic anaemia [Unknown]
  - Renal injury [Unknown]
  - Rebound acid hypersecretion [Unknown]
  - Chronic kidney disease [Not Recovered/Not Resolved]

NARRATIVE: CASE EVENT DATE: 20160229
